FAERS Safety Report 19634776 (Version 4)
Quarter: 2021Q3

REPORT INFORMATION
  Report Type: Other
  Country: CA (occurrence: CA)
  Receive Date: 20210730
  Receipt Date: 20210911
  Transmission Date: 20211014
  Serious: Yes (Hospitalization, Other)
  Sender: FDA-Public Use
  Company Number: CA-ROCHE-2874273

PATIENT
  Age: 63 Year
  Sex: Male

DRUGS (28)
  1. OCREVUS [Suspect]
     Active Substance: OCRELIZUMAB
     Indication: PRIMARY PROGRESSIVE MULTIPLE SCLEROSIS
     Dosage: 300 MG AT DAY 0 AND 14, THEN 600 MG EVERY 6 MONTH
     Route: 042
     Dates: start: 20190913
  2. PETROLATUM. [Concomitant]
     Active Substance: PETROLATUM
  3. EZETIMIBE. [Concomitant]
     Active Substance: EZETIMIBE
  4. ATORVASTATIN [Concomitant]
     Active Substance: ATORVASTATIN
  5. METFORMIN [Concomitant]
     Active Substance: METFORMIN HYDROCHLORIDE
  6. ARIPIPRAZOLE. [Concomitant]
     Active Substance: ARIPIPRAZOLE
  7. POLYETHYLENE [Concomitant]
     Active Substance: HIGH DENSITY POLYETHYLENE
  8. SPIRONOLACTONE. [Concomitant]
     Active Substance: SPIRONOLACTONE
  9. OCREVUS [Suspect]
     Active Substance: OCRELIZUMAB
     Indication: RELAPSING-REMITTING MULTIPLE SCLEROSIS
  10. TRAMADOL. [Concomitant]
     Active Substance: TRAMADOL
  11. TAMSULOSIN [Concomitant]
     Active Substance: TAMSULOSIN
  12. CYANOCOBALAMIN. [Concomitant]
     Active Substance: CYANOCOBALAMIN
  13. ZOPICLONE [Concomitant]
     Active Substance: ZOPICLONE
  14. SENNOSIDES. [Concomitant]
     Active Substance: SENNOSIDES
  15. ACETAMINOPHEN. [Concomitant]
     Active Substance: ACETAMINOPHEN
  16. DESVENLAFAXINE. [Concomitant]
     Active Substance: DESVENLAFAXINE
  17. NORTRIPTYLINE [Concomitant]
     Active Substance: NORTRIPTYLINE
  18. SITAGLIPTIN [Concomitant]
     Active Substance: SITAGLIPTIN
  19. BACLOFEN. [Concomitant]
     Active Substance: BACLOFEN
  20. GLICLAZIDE [Concomitant]
     Active Substance: GLICLAZIDE
  21. GLYCERINE [Concomitant]
     Active Substance: GLYCERIN
  22. CIPROFLOXACIN. [Concomitant]
     Active Substance: CIPROFLOXACIN
  23. PERINDOPRIL [Concomitant]
     Active Substance: PERINDOPRIL
  24. DEXLANSOPRAZOLE [Concomitant]
     Active Substance: DEXLANSOPRAZOLE
  25. CHOLECALCIFEROL [Concomitant]
     Active Substance: CHOLECALCIFEROL
  26. FUROSEMIDE. [Concomitant]
     Active Substance: FUROSEMIDE
  27. GABAPENTIN. [Concomitant]
     Active Substance: GABAPENTIN
  28. HYDROCHLOROTHIAZIDE. [Concomitant]
     Active Substance: HYDROCHLOROTHIAZIDE

REACTIONS (5)
  - Pneumonia [Not Recovered/Not Resolved]
  - Gait disturbance [Not Recovered/Not Resolved]
  - Urinary tract infection [Recovered/Resolved]
  - Delirium [Not Recovered/Not Resolved]
  - Cognitive disorder [Recovered/Resolved]

NARRATIVE: CASE EVENT DATE: 20210704
